FAERS Safety Report 10244401 (Version 2)
Quarter: 2014Q3

REPORT INFORMATION
  Report Type: Report from Study
  Country: US (occurrence: US)
  Receive Date: 20140618
  Receipt Date: 20140717
  Transmission Date: 20150326
  Serious: Yes (Hospitalization)
  Sender: FDA-Public Use
  Company Number: US-TEVA-488037USA

PATIENT
  Age: 57 Year
  Sex: Male
  Weight: 83 kg

DRUGS (10)
  1. COENZYME Q10 [Concomitant]
     Active Substance: UBIDECARENONE
     Indication: VITAMIN SUPPLEMENTATION
     Dosage: 2 DOSAGE FORMS DAILY;
     Dates: start: 201312
  2. SYMBICORT [Concomitant]
     Active Substance: BUDESONIDE\FORMOTEROL FUMARATE DIHYDRATE
     Indication: DYSPNOEA
  3. PRILOSEC [Concomitant]
     Active Substance: OMEPRAZOLE MAGNESIUM
     Indication: ABDOMINAL DISCOMFORT
     Dosage: 20 MILLIGRAM DAILY;
     Dates: start: 20140307
  4. NEULASTA [Concomitant]
     Active Substance: PEGFILGRASTIM
     Indication: SUPPLEMENTATION THERAPY
     Route: 058
     Dates: start: 20140419, end: 20140419
  5. BENDAMUSTINE [Suspect]
     Active Substance: BENDAMUSTINE
     Indication: NON-HODGKIN^S LYMPHOMA
     Dosage: CYCLE 1-2: DAY 2 AND 3, CYCLE 3 : DAY 1 AND 2 (28-DAY CYCLE) (90 MG/M2)
     Route: 042
     Dates: start: 20140213
  6. RITUXIMAB [Suspect]
     Active Substance: RITUXIMAB
     Indication: NON-HODGKIN^S LYMPHOMA
     Dosage: CYCLE 1:DAY 1, CYCLE3: DAY 1 (CYCLE 28-DAYS) (375 MG/M2)
     Route: 042
     Dates: start: 20140212
  7. METOPROLOL [Concomitant]
     Active Substance: METOPROLOL
     Indication: ARRHYTHMIA
     Dosage: 100 MILLIGRAM DAILY;
     Dates: start: 201312
  8. LIPITOR [Concomitant]
     Active Substance: ATORVASTATIN CALCIUM
     Indication: HYPERLIPIDAEMIA
     Dosage: 20 MILLIGRAM DAILY;
     Dates: start: 201312
  9. SYMBICORT [Concomitant]
     Active Substance: BUDESONIDE\FORMOTEROL FUMARATE DIHYDRATE
     Indication: CHRONIC OBSTRUCTIVE PULMONARY DISEASE
     Dosage: 4 PUFF (2 PUFF, 2 IN 1 D)
     Dates: start: 201312
  10. NEUPOGEN [Concomitant]
     Active Substance: FILGRASTIM
     Indication: SUPPLEMENTATION THERAPY
     Route: 058
     Dates: start: 20140410, end: 20140416

REACTIONS (3)
  - Cough [Recovered/Resolved]
  - Dyspnoea [Recovered/Resolved]
  - Syncope [Recovered/Resolved]

NARRATIVE: CASE EVENT DATE: 20140512
